FAERS Safety Report 9496225 (Version 1)
Quarter: 2013Q3

REPORT INFORMATION
  Report Type: Spontaneous
  Country: DE (occurrence: None)
  Receive Date: 20130829
  Receipt Date: 20130829
  Transmission Date: 20140515
  Serious: Yes (Life-Threatening)
  Sender: FDA-Public Use
  Company Number: FK201303735

PATIENT
  Age: 70 Year
  Sex: Male
  Weight: 80 kg

DRUGS (1)
  1. VOLUVEN [Suspect]
     Indication: PROCEDURAL HAEMORRHAGE
     Dosage: 1 IN 1 D (NOT OTHERWISE SPECIFIED)
     Route: 042
     Dates: start: 20130806, end: 20130806

REACTIONS (2)
  - Blood pressure decreased [None]
  - Tachycardia [None]
